FAERS Safety Report 20195484 (Version 1)
Quarter: 2021Q4

REPORT INFORMATION
  Report Type: Report from Study
  Country: AU (occurrence: AU)
  Receive Date: 20211216
  Receipt Date: 20211216
  Transmission Date: 20220304
  Serious: Yes (Other)
  Sender: FDA-Public Use
  Company Number: AU-JNJFOC-20211222676

PATIENT

DRUGS (2)
  1. SPRAVATO [Suspect]
     Active Substance: ESKETAMINE
     Indication: Product used for unknown indication
  2. AGOMELATINE [Concomitant]
     Active Substance: AGOMELATINE

REACTIONS (5)
  - Suicidal ideation [Unknown]
  - Disinhibition [Unknown]
  - Injury [Unknown]
  - Dissociation [Unknown]
  - Nausea [Unknown]
